FAERS Safety Report 10140763 (Version 5)
Quarter: 2014Q3

REPORT INFORMATION
  Report Type: Spontaneous
  Country: IN (occurrence: JP)
  Receive Date: 20140429
  Receipt Date: 20140901
  Transmission Date: 20150326
  Serious: Yes (Death)
  Sender: FDA-Public Use
  Company Number: PHHY2014JP050712

PATIENT
  Age: 79 Year
  Sex: Female

DRUGS (5)
  1. GLIVEC [Suspect]
     Active Substance: IMATINIB MESYLATE
     Indication: CHRONIC MYELOID LEUKAEMIA
     Dosage: 400 MG, QD
     Route: 048
     Dates: start: 20140417, end: 20140424
  2. NIFEDIPINE. [Concomitant]
     Active Substance: NIFEDIPINE
     Indication: HYPERTENSION
     Dosage: 40 MG, IN 2 DIVIDED DOSES
     Route: 048
  3. PAZUCROSS [Concomitant]
     Dosage: 300 MG, BID
  4. AMBISOME [Concomitant]
     Active Substance: AMPHOTERICIN B
     Dosage: 50 MG, QD
  5. TASIGNA [Suspect]
     Active Substance: NILOTINIB
     Indication: CHRONIC MYELOID LEUKAEMIA
     Dosage: 400 MG, QD
     Dates: end: 20140424

REACTIONS (13)
  - Diarrhoea [Not Recovered/Not Resolved]
  - White blood cell count increased [Not Recovered/Not Resolved]
  - Circulatory collapse [Fatal]
  - Chills [Not Recovered/Not Resolved]
  - Oedema peripheral [Recovering/Resolving]
  - Drug tolerance [Unknown]
  - Hyperkalaemia [Fatal]
  - Hepatic function abnormal [Unknown]
  - Pyrexia [Not Recovered/Not Resolved]
  - Therapeutic response decreased [Unknown]
  - Malaise [Not Recovered/Not Resolved]
  - Blood creatine phosphokinase increased [Not Recovered/Not Resolved]
  - Acute respiratory failure [Fatal]

NARRATIVE: CASE EVENT DATE: 201404
